FAERS Safety Report 6870102-9 (Version None)
Quarter: 2010Q3

REPORT INFORMATION
  Report Type: 
  Country: None (occurrence: None)
  Receive Date: 20100722
  Receipt Date: 20100713
  Transmission Date: 20110219
  Serious: Yes (Hospitalization)
  Sender: FDA-Public Use
  Company Number: IT-PFIZER INC-2010087654

PATIENT
  Age: 24 Year
  Sex: Male

DRUGS (1)
  1. ZITROMAX [Suspect]
     Indication: TONSILLITIS
     Dosage: 500 MG, 1X/DAY
     Route: 048
     Dates: start: 20100703, end: 20100703

REACTIONS (1)
  - PALATAL OEDEMA [None]
